FAERS Safety Report 7729978-5 (Version None)
Quarter: 2011Q3

REPORT INFORMATION
  Report Type: 
  Country: None (occurrence: None)
  Receive Date: 20110906
  Receipt Date: 20110824
  Transmission Date: 20111222
  Serious: Yes (Other)
  Sender: FDA-Public Use
  Company Number: PHHY2011CA74230

PATIENT
  Sex: Female

DRUGS (5)
  1. ZOLEDRONOC ACID [Suspect]
     Indication: OSTEOPOROSIS
     Dosage: UNK
     Route: 042
     Dates: start: 20100922
  2. SYNTHROID [Concomitant]
     Dosage: 0.05 MG, UNK
  3. ATIVAN [Concomitant]
     Dosage: 1 MG, UNK
  4. ADALAT [Concomitant]
     Dosage: 30 MG, UNK
  5. ACETABULOL [Concomitant]
     Dosage: 100 MG, BID

REACTIONS (5)
  - BONE NEOPLASM MALIGNANT [None]
  - PELVIC PAIN [None]
  - LYMPHOMA [None]
  - GAIT DISTURBANCE [None]
  - ARTHRALGIA [None]
